FAERS Safety Report 19237521 (Version 1)
Quarter: 2021Q2

REPORT INFORMATION
  Report Type: Spontaneous
  Country: US (occurrence: US)
  Receive Date: 20210510
  Receipt Date: 20210510
  Transmission Date: 20210717
  Serious: No
  Sender: FDA-Public Use
  Company Number: None

PATIENT
  Age: 67 Year
  Sex: Female
  Weight: 78.2 kg

DRUGS (17)
  1. NINLARO [Suspect]
     Active Substance: IXAZOMIB CITRATE
     Indication: PLASMA CELL MYELOMA
     Dosage: ?          OTHER FREQUENCY:4 MG ONCE/WEEK X 3;?
     Route: 048
     Dates: start: 20200701
  2. ACYCLOVIR 400 MG [Concomitant]
     Active Substance: ACYCLOVIR
  3. SULFAMETHOXAZOLE?TRIMETHOPRIM 400?80 [Concomitant]
  4. REVLIMID 15 MG [Concomitant]
     Dates: start: 20200701
  5. ASPIRIN 325 MG [Concomitant]
     Active Substance: ASPIRIN
  6. VITAMIN B12 1000 MCG TABS [Concomitant]
  7. ACETAMINOPHEN 500 MG [Concomitant]
     Active Substance: ACETAMINOPHEN
  8. ATORVASTATIN 40 MG [Concomitant]
     Active Substance: ATORVASTATIN
  9. INVOKANA [Concomitant]
     Active Substance: CANAGLIFLOZIN
  10. CHOLECALCIFEROL 2000 UNITS [Concomitant]
  11. DEXAMETHASONE 4 MG TABS [Concomitant]
  12. FLUTICASONE NASAL SPRAY [Concomitant]
     Active Substance: FLUTICASONE
  13. METOPROLOL 20 MG XL [Concomitant]
  14. OMEPRAZOLE 20 MG [Concomitant]
     Active Substance: OMEPRAZOLE
  15. LOSARTAN 100 MG [Concomitant]
     Active Substance: LOSARTAN
  16. ONDANSETRON. [Concomitant]
     Active Substance: ONDANSETRON
  17. PROCHLORPERAZINE 10 MG [Concomitant]
     Active Substance: PROCHLORPERAZINE

REACTIONS (1)
  - Vision blurred [None]

NARRATIVE: CASE EVENT DATE: 20210127
